FAERS Safety Report 9370527 (Version 1)
Quarter: 2013Q2

REPORT INFORMATION
  Report Type: Spontaneous
  Country: US (occurrence: US)
  Receive Date: 20130626
  Receipt Date: 20130626
  Transmission Date: 20140414
  Serious: Yes (Hospitalization, Other)
  Sender: FDA-Public Use
  Company Number: US-ABBOTT-13P-163-1106903-00

PATIENT
  Sex: Male

DRUGS (9)
  1. DEPAKOTE ER [Suspect]
     Indication: CONVULSION
     Route: 048
  2. LAMICTAL [Suspect]
     Indication: CONVULSION
     Dosage: EXTENDED RELEASE; TAPER UP 25 MG EVERY TWO WEEKS
     Route: 048
     Dates: start: 20130103
  3. TRILEPTAL [Suspect]
     Indication: CONVULSION
     Route: 048
  4. PARACETAMOL [Suspect]
     Indication: PRODUCT USED FOR UNKNOWN INDICATION
     Route: 065
  5. NORDITROPIN [Concomitant]
     Indication: PRODUCT USED FOR UNKNOWN INDICATION
  6. BUSPIRONE HYDROCHLORIDE [Concomitant]
     Indication: PRODUCT USED FOR UNKNOWN INDICATION
  7. LOVASTATIN [Concomitant]
     Indication: PRODUCT USED FOR UNKNOWN INDICATION
  8. NICOTINIC ACID [Concomitant]
     Indication: PRODUCT USED FOR UNKNOWN INDICATION
  9. MULTIVITAMINS [Concomitant]
     Indication: PRODUCT USED FOR UNKNOWN INDICATION

REACTIONS (38)
  - Meningitis aseptic [Recovering/Resolving]
  - Pneumothorax traumatic [Recovered/Resolved]
  - Sepsis [Unknown]
  - Meningitis viral [Unknown]
  - Pulmonary amyloidosis [Unknown]
  - Conduction disorder [Unknown]
  - Electrocardiogram ST segment depression [Unknown]
  - Electrocardiogram T wave inversion [Unknown]
  - Fall [Unknown]
  - Tachypnoea [Unknown]
  - Pulmonary mass [Unknown]
  - Supraventricular extrasystoles [Unknown]
  - Total lung capacity decreased [Unknown]
  - White blood cell count decreased [Unknown]
  - Atelectasis [Unknown]
  - Metabolic encephalopathy [Recovering/Resolving]
  - Inappropriate antidiuretic hormone secretion [Unknown]
  - Drug-induced liver injury [Recovered/Resolved]
  - Nausea [Recovered/Resolved]
  - Hyponatraemia [Unknown]
  - Transaminases increased [Unknown]
  - Thrombocytopenia [Unknown]
  - Headache [Recovering/Resolving]
  - Sinus tachycardia [Unknown]
  - Hypertension [Unknown]
  - Chills [Unknown]
  - Pain [Unknown]
  - Malaise [Unknown]
  - Confusional state [Unknown]
  - Cough [Unknown]
  - Agitation [Unknown]
  - Anaemia [Unknown]
  - Blood creatine phosphokinase increased [Unknown]
  - Blood alkaline phosphatase increased [Recovered/Resolved]
  - Aspartate aminotransferase increased [Recovered/Resolved]
  - Alanine aminotransferase increased [Recovered/Resolved]
  - Blood bilirubin increased [Recovered/Resolved]
  - Diarrhoea [Recovering/Resolving]
